FAERS Safety Report 18104650 (Version 1)
Quarter: 2020Q3

REPORT INFORMATION
  Report Type: Spontaneous
  Country: US (occurrence: US)
  Receive Date: 20200803
  Receipt Date: 20200803
  Transmission Date: 20201103
  Serious: Yes (Other)
  Sender: FDA-Public Use
  Company Number: US-PURDUE-USA-2020-0159363

PATIENT

DRUGS (1)
  1. OXYCONTIN [Suspect]
     Active Substance: OXYCODONE HYDROCHLORIDE
     Indication: PROCEDURAL PAIN
     Dosage: UNK
     Route: 048
     Dates: start: 2011

REACTIONS (5)
  - Drug ineffective [Unknown]
  - Toothache [Unknown]
  - Tooth socket haemorrhage [Unknown]
  - Tooth fracture [Unknown]
  - Tooth extraction [Unknown]

NARRATIVE: CASE EVENT DATE: 2020
